FAERS Safety Report 24277786 (Version 1)
Quarter: 2024Q3

REPORT INFORMATION
  Report Type: Spontaneous
  Country: CN (occurrence: CN)
  Receive Date: 20240903
  Receipt Date: 20240903
  Transmission Date: 20241017
  Serious: Yes (Other)
  Sender: BAXTER
  Company Number: None

PATIENT
  Age: 42 Year
  Sex: Male

DRUGS (1)
  1. MESNA [Suspect]
     Active Substance: MESNA
     Indication: Diffuse large B-cell lymphoma
     Dosage: 0.4 G, ONE TIME IN ONE DAY, (BAITE), START DATE: 19:22
     Route: 041
     Dates: start: 20240327

REACTIONS (5)
  - Phlebitis [Recovering/Resolving]
  - Administration site extravasation [Unknown]
  - Injection site erythema [Unknown]
  - Administration site swelling [Unknown]
  - Injection site haemorrhage [Recovered/Resolved]

NARRATIVE: CASE EVENT DATE: 20240329
